FAERS Safety Report 7778520-1 (Version None)
Quarter: 2011Q3

REPORT INFORMATION
  Report Type: 
  Country: None (occurrence: None)
  Receive Date: 20110926
  Receipt Date: 20110913
  Transmission Date: 20111222
  Serious: Yes (Hospitalization, Other)
  Sender: FDA-Public Use
  Company Number: US-BAYER-2011-021184

PATIENT
  Age: 18 Year
  Sex: Female
  Weight: 54.422 kg

DRUGS (4)
  1. TYLENOL-500 [Concomitant]
     Dosage: UNK UNK, PRN
  2. IBUPROFEN [Concomitant]
     Dosage: UNK UNK, PRN
  3. YAZ [Suspect]
     Indication: ACNE
     Dosage: UNK
     Route: 048
     Dates: start: 20070801, end: 20090301
  4. DAYQUIL [Concomitant]

REACTIONS (7)
  - GALLBLADDER DISORDER [None]
  - CHOLECYSTITIS CHRONIC [None]
  - BILIARY DYSKINESIA [None]
  - INJURY [None]
  - DIARRHOEA [None]
  - PAIN [None]
  - GENERAL PHYSICAL HEALTH DETERIORATION [None]
